FAERS Safety Report 8080053-2 (Version None)
Quarter: 2012Q1

REPORT INFORMATION
  Report Type: 
  Country: None (occurrence: None)
  Receive Date: 20120128
  Receipt Date: 20110812
  Transmission Date: 20120608
  Serious: No
  Sender: FDA-Public Use
  Company Number: US-ABBOTT-11P-163-0845962-00

PATIENT
  Sex: Male
  Weight: 63.56 kg

DRUGS (5)
  1. HUMIRA [Suspect]
     Dates: start: 20040101
  2. GROWTH HORMONE [Concomitant]
     Indication: GROWTH RETARDATION
     Dates: start: 20040101, end: 20040101
  3. METHOTREXATE [Concomitant]
     Indication: ARTHRITIS
  4. NAPROXEN [Concomitant]
     Indication: ARTHRITIS
  5. HUMIRA [Suspect]
     Indication: ARTHRITIS
     Dates: start: 20040101, end: 20040101

REACTIONS (1)
  - INAPPROPRIATE SCHEDULE OF DRUG ADMINISTRATION [None]
